FAERS Safety Report 8954874 (Version 1)
Quarter: 2012Q4

REPORT INFORMATION
  Report Type: 
  Country: US (occurrence: US)
  Receive Date: 20121207
  Receipt Date: 20121207
  Transmission Date: 20130627
  Serious: Yes (Hospitalization)
  Sender: FDA-Public Use
  Company Number: US-ASTRAZENECA-2012SE90177

PATIENT
  Age: 65 Year
  Sex: Male

DRUGS (2)
  1. GOSERELIN [Suspect]
     Indication: PROSTATE CANCER
     Route: 058
  2. EXTERNAL BEAM RADIATION TERAPY [Concomitant]
     Indication: PROSTATE CANCER

REACTIONS (2)
  - Depressive symptom [Unknown]
  - Post-traumatic stress disorder [Unknown]
